FAERS Safety Report 4296648-8 (Version None)
Quarter: 2004Q1

REPORT INFORMATION
  Report Type: 
  Country: None (occurrence: None)
  Receive Date: 20040217
  Receipt Date: 20031230
  Transmission Date: 20041129
  Serious: Yes (Hospitalization)
  Sender: FDA-Public Use
  Company Number: BR-ROCHE-354924

PATIENT
  Age: 15 Year
  Sex: Female

DRUGS (1)
  1. ACCUTANE [Suspect]
     Indication: ACNE
     Route: 048
     Dates: start: 20031215, end: 20031215

REACTIONS (4)
  - CEREBRAL THROMBOSIS [None]
  - CEREBRAL VENOUS THROMBOSIS [None]
  - CONVULSION [None]
  - VASCULITIS CEREBRAL [None]
